FAERS Safety Report 8166762-5 (Version None)
Quarter: 2012Q1

REPORT INFORMATION
  Report Type: 
  Country: None (occurrence: None)
  Receive Date: 20120227
  Receipt Date: 20120216
  Transmission Date: 20120608
  Serious: Yes (Hospitalization)
  Sender: FDA-Public Use
  Company Number: KR-MPIJNJ-2012-01128

PATIENT

DRUGS (3)
  1. VELCADE [Suspect]
     Indication: MULTIPLE MYELOMA
     Dosage: 1.3 MG/M2, UNK
     Route: 042
     Dates: start: 20111118, end: 20120102
  2. PREDNISOLONE [Suspect]
     Indication: MULTIPLE MYELOMA
     Dosage: 80 MG/M2, UNK
     Route: 065
     Dates: start: 20111118, end: 20111121
  3. MELPHALAN [Suspect]
     Indication: MULTIPLE MYELOMA
     Dosage: 12 MG/M2, UNK
     Route: 065
     Dates: start: 20111118, end: 20111121

REACTIONS (1)
  - PAIN [None]
